FAERS Safety Report 7901577-1 (Version None)
Quarter: 2011Q4

REPORT INFORMATION
  Report Type: 
  Country: None (occurrence: None)
  Receive Date: 20111104
  Receipt Date: 20111028
  Transmission Date: 20120403
  Serious: Yes (Hospitalization)
  Sender: FDA-Public Use
  Company Number: ACO_27269_2011

PATIENT
  Age: 46 Year
  Sex: Female

DRUGS (5)
  1. AMPYRA [Suspect]
     Indication: GAIT DISTURBANCE
     Dosage: 10 MG, BID, ORAL
     Route: 048
     Dates: start: 20110301, end: 20110903
  2. BACLOFEN [Concomitant]
  3. TYSABRI [Concomitant]
  4. LEXAPRO [Concomitant]
  5. PRIMIDONE [Concomitant]

REACTIONS (11)
  - MUSCLE SPASMS [None]
  - JOINT LOCK [None]
  - NASOPHARYNGITIS [None]
  - MUSCULOSKELETAL STIFFNESS [None]
  - CONCUSSION [None]
  - CEREBRAL HAEMORRHAGE [None]
  - ALCOHOL USE [None]
  - CRANIOCEREBRAL INJURY [None]
  - LACERATION [None]
  - FALL [None]
  - LOSS OF CONSCIOUSNESS [None]
